FAERS Safety Report 8376430-2 (Version None)
Quarter: 2012Q2

REPORT INFORMATION
  Report Type: 
  Country: None (occurrence: None)
  Receive Date: 20120522
  Receipt Date: 20120517
  Transmission Date: 20120825
  Serious: Yes (Other)
  Sender: FDA-Public Use
  Company Number: PHHY2012ES042644

PATIENT
  Age: 30 Year
  Sex: Female

DRUGS (2)
  1. CONTRACEPTIVES [Concomitant]
     Route: 048
  2. GILENYA [Suspect]
     Indication: MULTIPLE SCLEROSIS
     Dosage: 0.5 MG, QD
     Route: 048
     Dates: start: 20120516

REACTIONS (7)
  - COLD SWEAT [None]
  - HYPERVENTILATION [None]
  - PRESYNCOPE [None]
  - PERIPHERAL COLDNESS [None]
  - BRADYCARDIA [None]
  - PALLOR [None]
  - MUSCULOSKELETAL PAIN [None]
